FAERS Safety Report 24310996 (Version 1)
Quarter: 2024Q3

REPORT INFORMATION
  Report Type: Report from Study
  Country: NL (occurrence: None)
  Receive Date: 20240912
  Receipt Date: 20240912
  Transmission Date: 20241017
  Serious: Yes (Other)
  Sender: ADIENNE PHARMA & BIOTECH
  Company Number: NL-ADIENNEP-2024AD000728

PATIENT
  Sex: Male

DRUGS (6)
  1. THIOTEPA [Suspect]
     Active Substance: THIOTEPA
     Indication: Allogenic stem cell transplantation
  2. INFLUENZA VIRUS VACCINE [Suspect]
     Active Substance: INFLUENZA VIRUS VACCINE
     Indication: Allogenic stem cell transplantation
  3. ASPIRIN\CAFFEINE [Suspect]
     Active Substance: ASPIRIN\CAFFEINE
     Indication: Allogenic stem cell transplantation
     Dosage: (42G/M2)
  4. LAPINE T-LYMPHOCYTE IMMUNE GLOBULIN [Suspect]
     Active Substance: LAPINE T-LYMPHOCYTE IMMUNE GLOBULIN
  5. CYCLOSPORINE [Suspect]
     Active Substance: CYCLOSPORINE
     Indication: Prophylaxis against graft versus host disease
  6. MYCOPHENOLATE MOFETIL [Suspect]
     Active Substance: MYCOPHENOLATE MOFETIL
     Indication: Prophylaxis against graft versus host disease

REACTIONS (6)
  - Gastroenteritis norovirus [Recovered/Resolved]
  - Liver disorder [Recovered/Resolved]
  - Ascites [Recovered/Resolved]
  - Hepatic fibrosis [Unknown]
  - Capillary permeability increased [Recovered/Resolved]
  - Short stature [Unknown]
